FAERS Safety Report 21673391 (Version 1)
Quarter: 2022Q4

REPORT INFORMATION
  Report Type: Report from Study
  Country: IT (occurrence: IT)
  Receive Date: 20221202
  Receipt Date: 20221202
  Transmission Date: 20230113
  Serious: Yes (Hospitalization)
  Sender: FDA-Public Use
  Company Number: None

PATIENT
  Age: 62 Year
  Sex: Male

DRUGS (2)
  1. EZETIMIBE [Suspect]
     Active Substance: EZETIMIBE
     Dosage: UNK
  2. ASPIRIN\CLOPIDOGREL [Suspect]
     Active Substance: ASPIRIN\CLOPIDOGREL
     Dosage: FREQUENCY OF ADMINISTRATION: DAILY. ROUTE OF ADMINISTRATION: ORAL
     Route: 048

REACTIONS (2)
  - Palatal oedema [Not Recovered/Not Resolved]
  - Tongue oedema [Recovering/Resolving]

NARRATIVE: CASE EVENT DATE: 20220605
